FAERS Safety Report 17352057 (Version 1)
Quarter: 2020Q1

REPORT INFORMATION
  Report Type: Spontaneous
  Country: US (occurrence: US)
  Receive Date: 20200130
  Receipt Date: 20200130
  Transmission Date: 20200409
  Serious: No
  Sender: FDA-Public Use
  Company Number: US-BAUSCH-BL-2020-001621

PATIENT
  Age: 85 Year
  Sex: Female

DRUGS (2)
  1. RELISTOR [Suspect]
     Active Substance: METHYLNALTREXONE BROMIDE
     Indication: PRODUCT USE IN UNAPPROVED INDICATION
  2. RELISTOR [Suspect]
     Active Substance: METHYLNALTREXONE BROMIDE
     Indication: CONSTIPATION
     Dosage: 3 TABLETS (450 MG) EACH MORNING WITH ABOUT A PINT OF WATER
     Route: 065

REACTIONS (3)
  - Product use in unapproved indication [Unknown]
  - Product prescribing error [Unknown]
  - Glycosylated haemoglobin increased [Unknown]
